FAERS Safety Report 12551595 (Version 2)
Quarter: 2016Q3

REPORT INFORMATION
  Report Type: Report from Study
  Country: US (occurrence: US)
  Receive Date: 20160713
  Receipt Date: 20160716
  Transmission Date: 20161109
  Serious: Yes (Hospitalization, Other)
  Sender: FDA-Public Use
  Company Number: US-AMGEN-USASL2016089165

PATIENT
  Age: 69 Year
  Sex: Male

DRUGS (1)
  1. KYPROLIS [Suspect]
     Active Substance: CARFILZOMIB
     Indication: PRODUCT USED FOR UNKNOWN INDICATION
     Dosage: UNK
     Route: 065

REACTIONS (11)
  - Weight increased [Unknown]
  - Neoplasm [Unknown]
  - Activities of daily living impaired [Unknown]
  - Renal failure [Unknown]
  - Fluid retention [Unknown]
  - Memory impairment [Unknown]
  - Adverse event [Unknown]
  - Pneumonia [Recovered/Resolved]
  - Plasmacytoma [Unknown]
  - Spinal compression fracture [Unknown]
  - Infection [Recovered/Resolved]

NARRATIVE: CASE EVENT DATE: 20160616
